FAERS Safety Report 7286267-3 (Version None)
Quarter: 2011Q1

REPORT INFORMATION
  Report Type: 
  Country: None (occurrence: None)
  Receive Date: 20110210
  Receipt Date: 20110207
  Transmission Date: 20110831
  Serious: Yes (Death, Other)
  Sender: FDA-Public Use
  Company Number: PHHY2010CA50404

PATIENT
  Sex: Male

DRUGS (2)
  1. SANDOSTATIN LAR [Suspect]
     Dosage: 30 MG, EVERY FOUR WEEKS
     Route: 030
     Dates: end: 20110110
  2. SANDOSTATIN LAR [Suspect]
     Indication: NEUROENDOCRINE TUMOUR
     Dosage: 20 MG, EVERY 4 WEEKS
     Route: 030
     Dates: start: 20100407, end: 20100728

REACTIONS (10)
  - ABDOMINAL PAIN [None]
  - DEATH [None]
  - CONSTIPATION [None]
  - VOMITING [None]
  - NAUSEA [None]
  - EYE PRURITUS [None]
  - SWELLING FACE [None]
  - PAIN [None]
  - HYPERSENSITIVITY [None]
  - DECREASED APPETITE [None]
